FAERS Safety Report 9052407 (Version 1)
Quarter: 2013Q1

REPORT INFORMATION
  Report Type: Spontaneous
  Country: GR (occurrence: GR)
  Receive Date: 20130207
  Receipt Date: 20130207
  Transmission Date: 20140127
  Serious: Yes (Disabling)
  Sender: FDA-Public Use
  Company Number: GR-TEVA-383675ISR

PATIENT
  Age: 83 Year
  Sex: Female

DRUGS (2)
  1. METHOTREXATE [Suspect]
     Indication: RHEUMATOID ARTHRITIS
     Dosage: 1.4286 MILLIGRAM DAILY; WEEKLY DOSE OF METHOTREXATE 10MG
     Route: 065
  2. METHYLPREDNISOLONE [Concomitant]
     Indication: RHEUMATOID ARTHRITIS
     Dosage: 4 MILLIGRAM DAILY;
     Route: 065

REACTIONS (1)
  - Stomatitis [Recovered/Resolved]
